FAERS Safety Report 8853437 (Version 1)
Quarter: 2012Q4

REPORT INFORMATION
  Report Type: 
  Country: FR (occurrence: FR)
  Receive Date: 20121022
  Receipt Date: 20121022
  Transmission Date: 20130627
  Serious: Yes (Hospitalization)
  Sender: FDA-Public Use
  Company Number: FR-GLAXOSMITHKLINE-B0836433A

PATIENT
  Sex: Male

DRUGS (3)
  1. ARIXTRA [Suspect]
     Indication: PRODUCT USED FOR UNKNOWN INDICATION
     Dosage: 2.5MG Per day
     Route: 058
     Dates: start: 20120503, end: 20120510
  2. LAXATIVES [Concomitant]
  3. DIET PILL [Concomitant]
     Route: 048

REACTIONS (5)
  - Dermatitis bullous [Recovered/Resolved]
  - Skin haemorrhage [Recovered/Resolved]
  - Blister [Recovered/Resolved]
  - Skin lesion [Recovered/Resolved]
  - Dry skin [Recovered/Resolved]
